FAERS Safety Report 23750835 (Version 2)
Quarter: 2024Q2

REPORT INFORMATION
  Report Type: Spontaneous
  Country: NL (occurrence: NL)
  Receive Date: 20240417
  Receipt Date: 20240429
  Transmission Date: 20240717
  Serious: Yes (Death)
  Sender: FDA-Public Use
  Company Number: NL-AstraZeneca-2021A811950

PATIENT

DRUGS (2)
  1. GOSERELIN [Suspect]
     Active Substance: GOSERELIN
     Indication: Prostate cancer
     Dosage: 10.8 MILLIGRAM, EVERY 3 MONTHS
     Route: 058
     Dates: start: 20210825, end: 20211025
  2. ZOLADEX [Suspect]
     Active Substance: GOSERELIN ACETATE
     Indication: Prostate cancer
     Dosage: UNK
     Route: 065

REACTIONS (1)
  - Aneurysm [Fatal]

NARRATIVE: CASE EVENT DATE: 20211025
